FAERS Safety Report 13820203 (Version 1)
Quarter: 2017Q3

REPORT INFORMATION
  Report Type: Spontaneous
  Country: AR (occurrence: AR)
  Receive Date: 20170801
  Receipt Date: 20170801
  Transmission Date: 20171127
  Serious: Yes (Other)
  Sender: FDA-Public Use
  Company Number: AR-AMGEN-ARGSP2017114862

PATIENT
  Age: 71 Year
  Sex: Female

DRUGS (1)
  1. ENBREL [Suspect]
     Active Substance: ETANERCEPT
     Indication: RHEUMATOID ARTHRITIS
     Dosage: 50 MG, WEEKLY
     Route: 065
     Dates: start: 20050310

REACTIONS (6)
  - Fall [Recovering/Resolving]
  - Hypokinesia [Recovering/Resolving]
  - Pain in extremity [Recovering/Resolving]
  - Pain [Recovering/Resolving]
  - Upper limb fracture [Recovering/Resolving]
  - Pelvic fracture [Recovering/Resolving]

NARRATIVE: CASE EVENT DATE: 20170710
